FAERS Safety Report 8067650-5 (Version None)
Quarter: 2012Q1

REPORT INFORMATION
  Report Type: 
  Country: None (occurrence: None)
  Receive Date: 20120124
  Receipt Date: 20120123
  Transmission Date: 20120608
  Serious: Yes (Hospitalization)
  Sender: FDA-Public Use
  Company Number: US-TEVA-318729USA

PATIENT
  Sex: Female

DRUGS (5)
  1. AMANTADINE HCL [Concomitant]
  2. ERGOCALCIFEROL [Concomitant]
  3. COPAXONE [Suspect]
     Indication: MULTIPLE SCLEROSIS
     Dosage: 20 MILLIGRAM;
     Route: 058
  4. ASCORBIC ACID [Concomitant]
  5. AMPYRA [Concomitant]

REACTIONS (1)
  - URINARY RETENTION [None]
